FAERS Safety Report 15999135 (Version 1)
Quarter: 2019Q1

REPORT INFORMATION
  Report Type: Other
  Country: DE (occurrence: DE)
  Receive Date: 20190225
  Receipt Date: 20190225
  Transmission Date: 20190418
  Serious: Yes (Other)
  Sender: FDA-Public Use
  Company Number: DE-APOTEX-2019AP008128

PATIENT

DRUGS (2)
  1. CLOPIDOGREL [Suspect]
     Active Substance: CLOPIDOGREL BISULFATE
     Indication: PRODUCT USED FOR UNKNOWN INDICATION
     Route: 065
  2. ASPIRIN                            /00002701/ [Interacting]
     Active Substance: ASPIRIN
     Indication: PRODUCT USED FOR UNKNOWN INDICATION
     Route: 065

REACTIONS (3)
  - Contraindicated product administered [Unknown]
  - Labelled drug-drug interaction medication error [Unknown]
  - Gastrointestinal haemorrhage [Unknown]
